FAERS Safety Report 7999583-4 (Version None)
Quarter: 2011Q4

REPORT INFORMATION
  Report Type: 
  Country: None (occurrence: None)
  Receive Date: 20111221
  Receipt Date: 20111216
  Transmission Date: 20120403
  Serious: No
  Sender: FDA-Public Use
  Company Number: US-PFIZER INC-2011153383

PATIENT
  Sex: Female
  Weight: 77.098 kg

DRUGS (1)
  1. TOVIAZ [Suspect]
     Indication: URINARY INCONTINENCE
     Dosage: 8 MG, 1X/DAY
     Route: 048
     Dates: start: 20110701, end: 20110701

REACTIONS (10)
  - DRY MOUTH [None]
  - VISION BLURRED [None]
  - FATIGUE [None]
  - HOT FLUSH [None]
  - CHILLS [None]
  - PYREXIA [None]
  - HEADACHE [None]
  - MYALGIA [None]
  - CONSTIPATION [None]
  - HYPERHIDROSIS [None]
